FAERS Safety Report 6824975-6 (Version None)
Quarter: 2010Q3

REPORT INFORMATION
  Report Type: 
  Country: None (occurrence: None)
  Receive Date: 20100708
  Receipt Date: 20061212
  Transmission Date: 20110219
  Serious: No
  Sender: FDA-Public Use
  Company Number: US-PFIZER INC-2006154088

PATIENT
  Sex: Female
  Weight: 57.15 kg

DRUGS (6)
  1. CHANTIX [Suspect]
     Indication: SMOKING CESSATION THERAPY
     Dates: start: 20061130
  2. ESTROGENS [Concomitant]
  3. CYMBALTA [Concomitant]
  4. DILANTIN [Concomitant]
     Indication: CONVULSION
  5. SEROQUEL [Concomitant]
  6. AMBIEN [Concomitant]

REACTIONS (2)
  - ABDOMINAL PAIN UPPER [None]
  - DRUG INEFFECTIVE [None]
